FAERS Safety Report 24857149 (Version 1)
Quarter: 2025Q1

REPORT INFORMATION
  Report Type: Other
  Country: CA (occurrence: CA)
  Receive Date: 20250117
  Receipt Date: 20250117
  Transmission Date: 20250408
  Serious: Yes (Hospitalization)
  Sender: PFIZER
  Company Number: CA-PFIZER INC-202500009856

PATIENT

DRUGS (2)
  1. VORICONAZOLE [Interacting]
     Active Substance: VORICONAZOLE
     Indication: Antifungal prophylaxis
     Route: 065
  2. VENETOCLAX [Interacting]
     Active Substance: VENETOCLAX
     Indication: Acute myeloid leukaemia
     Dosage: 200 MG, 1X/DAY
     Route: 065

REACTIONS (6)
  - Contraindicated product administered [Unknown]
  - Drug interaction [Unknown]
  - Sinusitis fungal [Unknown]
  - Systemic mycosis [Unknown]
  - Therapeutic product ineffective [Unknown]
  - Off label use [Unknown]
